FAERS Safety Report 15435443 (Version 1)
Quarter: 2018Q3

REPORT INFORMATION
  Report Type: Spontaneous
  Country: US (occurrence: US)
  Receive Date: 20180927
  Receipt Date: 20180927
  Transmission Date: 20181010
  Serious: No
  Sender: FDA-Public Use
  Company Number: US-TEVA-2018-US-958539

PATIENT
  Age: 4 Decade
  Sex: Female

DRUGS (2)
  1. BACLOFEN. [Suspect]
     Active Substance: BACLOFEN
     Indication: MUSCLE SPASMS
     Route: 048
  2. LYRICA [Suspect]
     Active Substance: PREGABALIN
     Route: 065

REACTIONS (7)
  - Fall [Unknown]
  - Adverse event [Unknown]
  - Drug ineffective [Unknown]
  - Contusion [Unknown]
  - Eye contusion [Unknown]
  - Vomiting [Unknown]
  - Malaise [Unknown]
